FAERS Safety Report 7964688-0 (Version None)
Quarter: 2011Q4

REPORT INFORMATION
  Report Type: 
  Country: None (occurrence: None)
  Receive Date: 20111208
  Receipt Date: 20111130
  Transmission Date: 20120403
  Serious: Yes (Hospitalization)
  Sender: FDA-Public Use
  Company Number: US-SANOFI-AVENTIS-2011SA079154

PATIENT
  Age: 75 Year
  Sex: Female

DRUGS (3)
  1. LANTUS [Suspect]
     Indication: TYPE 2 DIABETES MELLITUS
     Dosage: 68UNITS IN AM AND 38UNITS IN PM
     Route: 058
  2. SOLOSTAR [Suspect]
     Indication: TYPE 2 DIABETES MELLITUS
  3. LANTUS [Suspect]
     Dosage: 68UNITS IN AM AND 38UNITS IN PM DOSE:68 UNIT(S)
     Route: 058

REACTIONS (3)
  - BLOOD GLUCOSE DECREASED [None]
  - SURGERY [None]
  - BLOOD GLUCOSE INCREASED [None]
